FAERS Safety Report 20044230 (Version 2)
Quarter: 2021Q4

REPORT INFORMATION
  Report Type: Report from Study
  Country: IN (occurrence: IN)
  Receive Date: 20211108
  Receipt Date: 20211123
  Transmission Date: 20220303
  Serious: Yes (Other)
  Sender: FDA-Public Use
  Company Number: IN-ASTELLAS-2021US032952

PATIENT
  Age: 30 Year
  Sex: Male

DRUGS (2)
  1. ISAVUCONAZOLE [Suspect]
     Active Substance: ISAVUCONAZOLE
     Indication: Disseminated mucormycosis
     Route: 048
     Dates: start: 20210721
  2. ISAVUCONAZOLE [Suspect]
     Active Substance: ISAVUCONAZOLE
     Dosage: 200 MG, ONCE DAILY (100 MG 2-0-0)
     Route: 065
     Dates: start: 20210824

REACTIONS (5)
  - Osteomyelitis [Unknown]
  - Skin lesion [Recovered/Resolved]
  - Increased appetite [Recovering/Resolving]
  - Bursitis [Unknown]
  - Nausea [Unknown]
